FAERS Safety Report 19724651 (Version 1)
Quarter: 2021Q3

REPORT INFORMATION
  Report Type: Spontaneous
  Country: DE (occurrence: DE)
  Receive Date: 20210820
  Receipt Date: 20210820
  Transmission Date: 20211014
  Serious: Yes (Other)
  Sender: FDA-Public Use
  Company Number: DE-AUROBINDO-AUR-APL-2012-03853

PATIENT
  Sex: Female
  Weight: 132 kg

DRUGS (6)
  1. EXFORGE HCT [Suspect]
     Active Substance: AMLODIPINE BESYLATE\HYDROCHLOROTHIAZIDE\VALSARTAN
     Indication: HYPERTENSION
     Dosage: 10/160/25 MG
     Route: 048
  2. THYRONAJOD [Concomitant]
     Active Substance: LEVOTHYROXINE SODIUM\POTASSIUM IODIDE
     Indication: GOITRE
     Dosage: 50 MILLIGRAM
     Route: 048
  3. AMLODIPIN AUROBINDO 5 MG TABLETTEN [Suspect]
     Active Substance: AMLODIPINE BESYLATE
     Indication: HYPERTENSION
     Dosage: 5 MG,UNK,
     Route: 048
     Dates: start: 20120111, end: 20120111
  4. MICARDIS [Suspect]
     Active Substance: TELMISARTAN
     Indication: HYPERTENSION
     Dosage: 40 MILLIGRAM, ONCE A DAY
     Route: 048
  5. RASILAMLO [Suspect]
     Active Substance: ALISKIREN\AMLODIPINE
     Indication: HYPERTENSION
     Dosage: UNK UNK,UNK,,150/5MG
     Route: 048
  6. RAMIPRIL AUROBINDO TABLETTEN 5MG [Suspect]
     Active Substance: RAMIPRIL
     Indication: HYPERTENSION
     Dosage: 2.5 MG,ONCE,
     Route: 048

REACTIONS (3)
  - Lip swelling [Recovered/Resolved]
  - Paraesthesia oral [Recovered/Resolved]
  - Palatal oedema [Recovered/Resolved]
